FAERS Safety Report 24673789 (Version 1)
Quarter: 2024Q4

REPORT INFORMATION
  Report Type: Spontaneous
  Country: JP (occurrence: JP)
  Receive Date: 20241128
  Receipt Date: 20241128
  Transmission Date: 20250115
  Serious: No
  Sender: MERCK
  Company Number: JP-MSD-M2024-48993

PATIENT
  Age: 78 Year
  Sex: Female

DRUGS (3)
  1. LAGEVRIO [Suspect]
     Active Substance: MOLNUPIRAVIR
     Indication: COVID-19 treatment
     Dosage: 800 MILLIGRAM, BID
     Route: 048
     Dates: start: 202411
  2. CALONAL [Suspect]
     Active Substance: ACETAMINOPHEN
     Dosage: 300 MILLIGRAM, PRN
     Route: 048
  3. HERBALS [Concomitant]
     Active Substance: HERBALS
     Dosage: 3 GRAM, TID
     Route: 065

REACTIONS (2)
  - Accidental underdose [Unknown]
  - Product packaging quantity issue [Unknown]

NARRATIVE: CASE EVENT DATE: 20241101
